FAERS Safety Report 10261359 (Version 1)
Quarter: 2014Q2

REPORT INFORMATION
  Report Type: Spontaneous
  Country: US (occurrence: US)
  Receive Date: 20140626
  Receipt Date: 20140626
  Transmission Date: 20141212
  Serious: Yes (Hospitalization)
  Sender: FDA-Public Use
  Company Number: US-BAYER-2014-094885

PATIENT
  Age: 48 Year
  Sex: Female
  Weight: 83.9 kg

DRUGS (15)
  1. YAZ [Suspect]
  2. ESTRACE [Concomitant]
     Dosage: 0.1 MG, UNK
  3. PROMETHAZINE [Concomitant]
     Dosage: 6.25
  4. SMZ-TMP [Concomitant]
     Dosage: 800-160 MG
  5. HYDROCODONE W/ACETAMINOPHEN [Concomitant]
     Dosage: 7.5/500 MG
  6. NASACORT [Concomitant]
     Dosage: 55 MCG
  7. FEXOFENADINE [Concomitant]
     Dosage: 180 MG, UNK
  8. TERCONAZOLE [Concomitant]
     Dosage: 0.4 %, UNK
  9. INDOMETHACIN [Concomitant]
     Dosage: 50 MG, UNK
  10. PREMARIN [Concomitant]
     Dosage: 0.3 MG, UNK
  11. FLUCONAZOLE [Concomitant]
     Dosage: 150 MG, UNK
  12. UROXATRAL [Concomitant]
     Dosage: 10 MG, UNK
  13. NITROFURAL [Concomitant]
     Dosage: 100 MG, UNK
  14. UTIRA [Concomitant]
     Dosage: UNK
  15. BYSTOLIC [Concomitant]
     Dosage: 10 MG, UNK

REACTIONS (1)
  - Deep vein thrombosis [Recovering/Resolving]
